FAERS Safety Report 11660966 (Version 1)
Quarter: 2015Q4

REPORT INFORMATION
  Report Type: Report from Study
  Country: AU (occurrence: AU)
  Receive Date: 20151026
  Receipt Date: 20151026
  Transmission Date: 20160304
  Serious: Yes (Death, Other)
  Sender: FDA-Public Use
  Company Number: AU-CELGENE-AUS-2015104206

PATIENT

DRUGS (2)
  1. AZACITIDINE. [Suspect]
     Active Substance: AZACITIDINE
     Indication: PRODUCT USED FOR UNKNOWN INDICATION
     Route: 058
  2. ELTROMBOPAG [Suspect]
     Active Substance: ELTROMBOPAG
     Indication: PRODUCT USED FOR UNKNOWN INDICATION
     Route: 065

REACTIONS (28)
  - Hypertension [Unknown]
  - Thrombocytopenia [Unknown]
  - Cough [Unknown]
  - Gastrointestinal haemorrhage [Unknown]
  - Skin infection [Unknown]
  - Atrial fibrillation [Unknown]
  - Skin discolouration [Unknown]
  - Diarrhoea [Unknown]
  - Fatigue [Unknown]
  - Blood bilirubin increased [Unknown]
  - Injection site reaction [Unknown]
  - Thrombocytosis [Unknown]
  - Nausea [Unknown]
  - Haemorrhagic stroke [Unknown]
  - Myocardial infarction [Unknown]
  - Sepsis [Unknown]
  - Acute myeloid leukaemia [Unknown]
  - Febrile neutropenia [Unknown]
  - Bone marrow failure [Unknown]
  - Vomiting [Unknown]
  - Dry mouth [Unknown]
  - Constipation [Unknown]
  - Disease progression [Fatal]
  - Pain [Unknown]
  - Decreased appetite [Unknown]
  - Aspartate aminotransferase increased [Unknown]
  - Anaemia [Unknown]
  - Neutropenic infection [Fatal]
